FAERS Safety Report 11483848 (Version 1)
Quarter: 2015Q3

REPORT INFORMATION
  Report Type: Spontaneous
  Country: US (occurrence: US)
  Receive Date: 20150903
  Receipt Date: 20150903
  Transmission Date: 20151125
  Serious: No
  Sender: FDA-Public Use
  Company Number: US-ELI_LILLY_AND_COMPANY-US201206003917

PATIENT
  Sex: Female

DRUGS (2)
  1. CYMBALTA [Suspect]
     Active Substance: DULOXETINE HYDROCHLORIDE
     Indication: FIBROMYALGIA
     Dosage: 30 MG, BID
     Dates: start: 20120118, end: 20120207
  2. OTHER ANTIHYPERTENSIVES [Concomitant]
     Active Substance: UNSPECIFIED INGREDIENT

REACTIONS (11)
  - Feeling abnormal [Unknown]
  - Off label use [Unknown]
  - Fall [Recovered/Resolved]
  - Decreased appetite [Unknown]
  - Asthenia [Unknown]
  - Drug ineffective [Unknown]
  - Lethargy [Unknown]
  - Intentional product misuse [Unknown]
  - Hypersomnia [Recovered/Resolved]
  - Weight increased [Unknown]
  - Gait disturbance [Recovered/Resolved]
